FAERS Safety Report 11440215 (Version 1)
Quarter: 2015Q3

REPORT INFORMATION
  Report Type: Spontaneous
  Country: FR (occurrence: FR)
  Receive Date: 20150901
  Receipt Date: 20150901
  Transmission Date: 20151125
  Serious: Yes (Other)
  Sender: FDA-Public Use
  Company Number: FR-ROCHE-1627651

PATIENT
  Age: 60 Year
  Sex: Female

DRUGS (6)
  1. HERCEPTIN [Suspect]
     Active Substance: TRASTUZUMAB
     Indication: BREAST CANCER
     Route: 058
     Dates: start: 201007, end: 20150717
  2. NOVORAPID [Concomitant]
     Active Substance: INSULIN ASPART
  3. LANTUS [Concomitant]
     Active Substance: INSULIN GLARGINE
  4. VENLAFAXINE [Concomitant]
     Active Substance: VENLAFAXINE HYDROCHLORIDE
  5. LORMETAZEPAM [Concomitant]
     Active Substance: LORMETAZEPAM
  6. BROMAZEPAM [Concomitant]
     Active Substance: BROMAZEPAM

REACTIONS (3)
  - Vascular purpura [Not Recovered/Not Resolved]
  - Subcutaneous haematoma [Not Recovered/Not Resolved]
  - Oedema peripheral [Not Recovered/Not Resolved]

NARRATIVE: CASE EVENT DATE: 20150717
